FAERS Safety Report 8804467 (Version 2)
Quarter: 2012Q4

REPORT INFORMATION
  Report Type: 
  Country: US (occurrence: US)
  Receive Date: 20120924
  Receipt Date: 20120927
  Transmission Date: 20130627
  Serious: No
  Sender: FDA-Public Use
  Company Number: US-B.I. PHARMACEUTICALS,INC./RIDGEFIELD-2012-BP-22375BP

PATIENT
  Sex: Male

DRUGS (9)
  1. SPIRIVA [Suspect]
     Indication: CHRONIC OBSTRUCTIVE PULMONARY DISEASE
     Dosage: 18 mcg
     Route: 055
     Dates: start: 2004
  2. SPIRIVA [Suspect]
     Indication: EMPHYSEMA
  3. ADVAIR [Concomitant]
     Indication: CHRONIC OBSTRUCTIVE PULMONARY DISEASE
     Dosage: 1 puf
     Route: 055
  4. ADVAIR [Concomitant]
     Indication: EMPHYSEMA
  5. NEURONTIN [Concomitant]
     Indication: PAIN
     Route: 048
  6. MEDICATION NOT FURTHER SPECIFIED [Concomitant]
     Indication: HYPERSENSITIVITY
  7. MEDICATION NOT FURTHER SPECIFIED [Concomitant]
     Indication: THYROID DISORDER
  8. MEDICATION NOT FURTHER SPECIFIED [Concomitant]
     Indication: HEADACHE
  9. UNNAMED MUSCLE RELAXANT [Concomitant]

REACTIONS (3)
  - Drug ineffective [Not Recovered/Not Resolved]
  - Product quality issue [Unknown]
  - Product quality issue [Unknown]
